FAERS Safety Report 12481545 (Version 1)
Quarter: 2016Q2

REPORT INFORMATION
  Report Type: Spontaneous
  Country: US (occurrence: US)
  Receive Date: 20160620
  Receipt Date: 20160620
  Transmission Date: 20160815
  Serious: Yes (Other)
  Sender: FDA-Public Use
  Company Number: US-BAUSCH-BL-2015-023285

PATIENT
  Sex: Male

DRUGS (3)
  1. PROVENGE [Suspect]
     Active Substance: SIPULEUCEL-T
     Indication: PROSTATE CANCER METASTATIC
     Dosage: 250 ML. SINGLE
     Route: 042
     Dates: start: 20150806, end: 20150806
  2. PROVENGE [Suspect]
     Active Substance: SIPULEUCEL-T
     Dosage: 250 ML. SINGLE
     Route: 042
     Dates: start: 20150903, end: 20150903
  3. PROVENGE [Suspect]
     Active Substance: SIPULEUCEL-T
     Dosage: 250 ML. SINGLE
     Route: 042
     Dates: start: 20150820, end: 20150820

REACTIONS (2)
  - Tumour flare [Unknown]
  - Musculoskeletal pain [Unknown]
